FAERS Safety Report 20033133 (Version 3)
Quarter: 2022Q2

REPORT INFORMATION
  Report Type: Report from Study
  Country: FR (occurrence: FR)
  Receive Date: 20211104
  Receipt Date: 20220519
  Transmission Date: 20220721
  Serious: Yes (Hospitalization)
  Sender: FDA-Public Use
  Company Number: FR-AMGEN-FRANI2021170571

PATIENT
  Age: 64 Year
  Sex: Male

DRUGS (4)
  1. AMG-510 [Suspect]
     Active Substance: AMG-510
     Indication: Non-small cell lung cancer
     Dosage: 960 MILLIGRAM, QD
     Route: 048
     Dates: start: 20210520
  2. AMG-510 [Suspect]
     Active Substance: AMG-510
     Indication: K-ras gene mutation
     Dosage: 480 MILLIGRAM, QD
     Route: 048
  3. AMG-510 [Suspect]
     Active Substance: AMG-510
     Dosage: 720 MILLIGRAM, QD
     Route: 048
  4. AMG-510 [Suspect]
     Active Substance: AMG-510
     Dosage: 960 MILLIGRAM, QD
     Route: 048

REACTIONS (1)
  - Gastrointestinal toxicity [Recovered/Resolved]

NARRATIVE: CASE EVENT DATE: 20210802
